FAERS Safety Report 8859995 (Version 1)
Quarter: 2012Q4

REPORT INFORMATION
  Report Type: 
  Country: US (occurrence: US)
  Receive Date: 20121025
  Receipt Date: 20121025
  Transmission Date: 20130627
  Serious: Yes (Other)
  Sender: FDA-Public Use
  Company Number: PHEH2012US019787

PATIENT
  Age: 60 Year
  Sex: Male
  Weight: 73.47 kg

DRUGS (1)
  1. SANDOSTATIN LAR DEPOT [Suspect]
     Indication: DIARRHOEA
     Dosage: 30 mg, once in 4 weeks
     Route: 030
     Dates: start: 20101110

REACTIONS (3)
  - Pancreatic carcinoma [Unknown]
  - Injection site haemorrhage [Unknown]
  - Drug administration error [Unknown]
